FAERS Safety Report 7869937-5 (Version None)
Quarter: 2011Q4

REPORT INFORMATION
  Report Type: 
  Country: None (occurrence: None)
  Receive Date: 20111028
  Receipt Date: 20110111
  Transmission Date: 20120403
  Serious: No
  Sender: FDA-Public Use
  Company Number: US-AMGEN-USASP2011001747

PATIENT
  Age: 63 Year
  Sex: Female

DRUGS (1)
  1. ENBREL [Suspect]
     Indication: RHEUMATOID ARTHRITIS
     Dates: start: 20070201, end: 20101201

REACTIONS (5)
  - JOINT DESTRUCTION [None]
  - DEVICE FAILURE [None]
  - GAIT DISTURBANCE [None]
  - PAIN [None]
  - TOOTH DISORDER [None]
